FAERS Safety Report 9812352 (Version 1)
Quarter: 2014Q1

REPORT INFORMATION
  Report Type: Spontaneous
  Country: FR (occurrence: FR)
  Receive Date: 20140113
  Receipt Date: 20140113
  Transmission Date: 20141002
  Serious: Yes (Hospitalization)
  Sender: FDA-Public Use
  Company Number: FR-ROCHE-1329698

PATIENT
  Age: 52 Year
  Sex: Female

DRUGS (4)
  1. TARCEVA [Suspect]
     Indication: LUNG CANCER METASTATIC
     Route: 048
     Dates: start: 201305, end: 20131205
  2. APRANAX [Suspect]
     Indication: PRODUCT USED FOR UNKNOWN INDICATION
     Route: 048
     Dates: start: 20131128, end: 20131205
  3. XARELTO [Suspect]
     Indication: PRODUCT USED FOR UNKNOWN INDICATION
     Dosage: 20 MG
     Route: 048
     Dates: start: 20131109, end: 20131205
  4. HYDROCORTISONE [Concomitant]

REACTIONS (2)
  - Renal failure acute [Recovering/Resolving]
  - Anaemia [Recovering/Resolving]
